FAERS Safety Report 4738133-2 (Version None)
Quarter: 2005Q3

REPORT INFORMATION
  Report Type: 
  Country: None (occurrence: None)
  Receive Date: 20050809
  Receipt Date: 20041021
  Transmission Date: 20060218
  Serious: Yes (Hospitalization, Disabling)
  Sender: FDA-Public Use
  Company Number: DE-MERCK-0410DEU00671

PATIENT
  Age: 64 Year
  Sex: Female
  Weight: 89 kg

DRUGS (4)
  1. VIOXX [Suspect]
     Indication: OSTEOARTHRITIS
     Route: 048
     Dates: start: 20020521
  2. VIOXX [Suspect]
     Indication: SPINAL OSTEOARTHRITIS
     Route: 048
     Dates: start: 20020521
  3. OMEPRAZOLE [Concomitant]
     Route: 048
     Dates: start: 19930101
  4. METOPROLOL SUCCINATE [Concomitant]
     Route: 065

REACTIONS (5)
  - ANAEMIA [None]
  - DEEP VEIN THROMBOSIS [None]
  - HIATUS HERNIA [None]
  - MUCOSAL EROSION [None]
  - PULMONARY EMBOLISM [None]
